FAERS Safety Report 6817639-6 (Version None)
Quarter: 2010Q3

REPORT INFORMATION
  Report Type: 
  Country: None (occurrence: None)
  Receive Date: 20100706
  Receipt Date: 20100106
  Transmission Date: 20110219
  Serious: Yes (Hospitalization, Other)
  Sender: FDA-Public Use
  Company Number: US-ASTRAZENECA-2007UW01939

PATIENT
  Age: 369 Month
  Sex: Female
  Weight: 129.3 kg

DRUGS (6)
  1. SEROQUEL [Suspect]
     Indication: DEPRESSION
     Route: 048
     Dates: start: 20030101
  2. SEROQUEL [Suspect]
     Indication: SLEEP DISORDER
     Route: 048
     Dates: start: 20030101
  3. SEROQUEL [Suspect]
     Dosage: 25 TO 50 MG
     Route: 048
     Dates: start: 20041101, end: 20050518
  4. SEROQUEL [Suspect]
     Dosage: 25 TO 50 MG
     Route: 048
     Dates: start: 20041101, end: 20050518
  5. ZOLOFT [Concomitant]
     Dates: start: 20030101
  6. GLUCOPHAGE [Concomitant]
     Dates: start: 20050501

REACTIONS (10)
  - ANAEMIA [None]
  - BLOOD CHOLESTEROL INCREASED [None]
  - HYPERANDROGENISM [None]
  - INSULIN RESISTANCE [None]
  - METABOLIC SYNDROME [None]
  - OBESITY [None]
  - POLYCYSTIC OVARIES [None]
  - TYPE 2 DIABETES MELLITUS [None]
  - UTERINE DISORDER [None]
  - VAGINAL HAEMORRHAGE [None]
